FAERS Safety Report 8456997-6 (Version None)
Quarter: 2012Q2

REPORT INFORMATION
  Report Type: 
  Country: None (occurrence: None)
  Receive Date: 20120621
  Receipt Date: 20120611
  Transmission Date: 20120825
  Serious: Yes (Hospitalization)
  Sender: FDA-Public Use
  Company Number: US-CELGENEUS-163-21880-12061710

PATIENT
  Sex: Male

DRUGS (5)
  1. REVLIMID [Suspect]
     Dosage: 15 MILLIGRAM
     Route: 048
     Dates: start: 20101201, end: 20120101
  2. AMITIZA [Concomitant]
     Route: 065
  3. GABAPENTIN [Concomitant]
     Route: 065
  4. FLOMAX [Concomitant]
     Route: 065
  5. RAPAFLO [Concomitant]
     Route: 065

REACTIONS (2)
  - PROSTATIC DISORDER [None]
  - BLADDER DISORDER [None]
